FAERS Safety Report 8773414 (Version 3)
Quarter: 2012Q4

REPORT INFORMATION
  Report Type: 
  Country: JP (occurrence: JP)
  Receive Date: 20120907
  Receipt Date: 20120928
  Transmission Date: 20130627
  Serious: Yes (Hospitalization)
  Sender: FDA-Public Use
  Company Number: JP-JNJFOC-20120901233

PATIENT
  Age: 8 Year
  Sex: Female

DRUGS (5)
  1. TOPINA [Suspect]
     Indication: EPILEPSY
     Route: 048
  2. PHENYTOIN [Suspect]
     Indication: EPILEPSY
     Route: 065
  3. MIDAZOLAM [Suspect]
     Indication: EPILEPSY
     Route: 065
  4. PHENOBARBITAL [Suspect]
     Indication: EPILEPSY
     Route: 065
  5. DIAZEPAM [Suspect]
     Indication: EPILEPSY
     Route: 065

REACTIONS (1)
  - Status epilepticus [Unknown]
